FAERS Safety Report 23915789 (Version 1)
Quarter: 2024Q2

REPORT INFORMATION
  Report Type: Spontaneous
  Country: DE (occurrence: DE)
  Receive Date: 20240529
  Receipt Date: 20240529
  Transmission Date: 20240716
  Serious: Yes (Other)
  Sender: FDA-Public Use
  Company Number: DE-BoehringerIngelheim-2024-BI-029924

PATIENT
  Age: 71 Year
  Sex: Male

DRUGS (4)
  1. AFATINIB [Suspect]
     Active Substance: AFATINIB
     Indication: Non-small cell lung cancer stage IV
     Dates: start: 202105
  2. AFATINIB [Suspect]
     Active Substance: AFATINIB
     Indication: EGFR gene mutation
     Dosage: AFATINIB WAS REDUCED TO WEEKLY?ALTERNATION OF 20/30 MG
     Dates: end: 202110
  3. DENOSUMAB [Concomitant]
     Active Substance: DENOSUMAB
     Indication: Non-small cell lung cancer stage IV
  4. DENOSUMAB [Concomitant]
     Active Substance: DENOSUMAB
     Indication: EGFR gene mutation

REACTIONS (6)
  - Malignant neoplasm progression [Unknown]
  - Rash [Unknown]
  - Therapy partial responder [Unknown]
  - Therapy partial responder [Unknown]
  - Diarrhoea [Unknown]
  - Therapy partial responder [Unknown]

NARRATIVE: CASE EVENT DATE: 20210101
